FAERS Safety Report 17082079 (Version 1)
Quarter: 2019Q4

REPORT INFORMATION
  Report Type: Spontaneous
  Country: US (occurrence: US)
  Receive Date: 20191127
  Receipt Date: 20191127
  Transmission Date: 20200122
  Serious: Yes (Other)
  Sender: FDA-Public Use
  Company Number: US-BAYER-2019-210393

PATIENT
  Age: 30 Year
  Sex: Female

DRUGS (1)
  1. ACETYLSALICYLIC ACID (CARDIO) [Suspect]
     Active Substance: ASPIRIN

REACTIONS (4)
  - Foetal heart rate deceleration abnormality [None]
  - Contraindicated product administered [Unknown]
  - Maternal exposure during pregnancy [None]
  - Prolonged labour [None]
